FAERS Safety Report 8897842 (Version 2)
Quarter: 2012Q4

REPORT INFORMATION
  Report Type: 
  Country: ZA (occurrence: ZA)
  Receive Date: 20121109
  Receipt Date: 20121127
  Transmission Date: 20130627
  Serious: Yes (Hospitalization, Other)
  Sender: FDA-Public Use
  Company Number: ZA-ELI_LILLY_AND_COMPANY-ZA201211002060

PATIENT
  Sex: Female

DRUGS (5)
  1. HUMULIN NPH [Suspect]
     Indication: DIABETES MELLITUS
     Dosage: 14 IU, each evening
     Route: 058
     Dates: start: 20120614, end: 20121002
  2. HUMULIN REGULAR [Suspect]
     Indication: DIABETES MELLITUS
     Dosage: 12 IU, tid
     Route: 058
     Dates: start: 20120614, end: 20121002
  3. DOXAZOSIN MESYLATE [Concomitant]
     Indication: HYPERTENSION
     Dosage: 2 DF, each morning
     Route: 048
  4. SPIRACTIN [Concomitant]
     Indication: HYPERTENSION
     Dosage: 1 DF, bid
     Route: 048
  5. ELTROXIN [Concomitant]
     Indication: HYPOTHYROIDISM
     Dosage: 2 mg, each morning
     Route: 048

REACTIONS (4)
  - Intestinal obstruction [Recovering/Resolving]
  - Vomiting [Recovering/Resolving]
  - Diabetic gastroparesis [Not Recovered/Not Resolved]
  - Diabetic ketoacidosis [Recovering/Resolving]
